FAERS Safety Report 18025650 (Version 3)
Quarter: 2020Q4

REPORT INFORMATION
  Report Type: Report from Study
  Country: None (occurrence: US)
  Receive Date: 20200715
  Receipt Date: 20201001
  Transmission Date: 20210113
  Serious: Yes (Hospitalization)
  Sender: FDA-Public Use
  Company Number: US-INSMED, INC.-US-INS-20-00514

PATIENT
  Age: 71 Year
  Sex: Male

DRUGS (2)
  1. ARIKAYCE [Suspect]
     Active Substance: AMIKACIN
     Indication: MYCOBACTERIUM AVIUM COMPLEX INFECTION
     Route: 055
     Dates: start: 2020, end: 202004
  2. ARIKAYCE [Suspect]
     Active Substance: AMIKACIN
     Route: 055
     Dates: start: 202004, end: 202005

REACTIONS (10)
  - Chills [Recovered/Resolved]
  - Throat irritation [Unknown]
  - Pain [Recovered/Resolved]
  - Gastric disorder [Not Recovered/Not Resolved]
  - Off label use [Unknown]
  - Pyrexia [Recovered/Resolved]
  - Rhinorrhoea [Unknown]
  - Product dose omission issue [Unknown]
  - Influenza like illness [Recovered/Resolved]
  - Cough [Recovered/Resolved]

NARRATIVE: CASE EVENT DATE: 2020
